FAERS Safety Report 7292488 (Version 7)
Quarter: 2013Q2

REPORT INFORMATION
  Report Type: Report from Study
  Country: US (occurrence: US)
  Receive Date: 20100224
  Receipt Date: 20130409
  Transmission Date: 20140414
  Serious: Yes (Hospitalization)
  Sender: FDA-Public Use
  Company Number: PHHO2010US02674

PATIENT
  Age: 68 Year
  Sex: Male
  Weight: 96.7 kg

DRUGS (11)
  1. AFINITOR [Suspect]
     Indication: SARCOMA
     Dosage: 10 MG, QD
     Route: 048
     Dates: start: 20100202, end: 20100212
  2. ALAVERT [Concomitant]
     Dosage: UNK
  3. ALEVE [Concomitant]
     Dosage: UNK
  4. ASPIRIN [Concomitant]
     Dosage: UNK
  5. DECADRON [Concomitant]
     Dosage: UNK
  6. LIDOCAINE [Concomitant]
     Dosage: UNK
  7. MAALOX [Concomitant]
     Dosage: UNK
  8. DIPHENHYDRAMINE [Concomitant]
     Dosage: UNK
  9. REGLAN [Concomitant]
     Dosage: UNK
  10. TERAZOSIN HYDROCHLORIDE [Concomitant]
     Dosage: UNK
  11. NORMAL SALINE [Concomitant]
     Dosage: UNK

REACTIONS (6)
  - Postoperative wound complication [Recovered/Resolved]
  - Wound dehiscence [Recovered/Resolved]
  - Skin disorder [Recovered/Resolved]
  - Device related infection [Recovered/Resolved]
  - Stomatitis [Recovered/Resolved]
  - Epistaxis [Recovered/Resolved]
